FAERS Safety Report 5414459-4 (Version None)
Quarter: 2007Q3

REPORT INFORMATION
  Report Type: 
  Country: None (occurrence: None)
  Receive Date: 20070731
  Receipt Date: 20070608
  Transmission Date: 20080115
  Serious: No
  Sender: FDA-Public Use
  Company Number: US200705006588

PATIENT
  Age: 54 Year
  Sex: Female

DRUGS (1)
  1. BYETTA [Suspect]
     Indication: DIABETES MELLITUS
     Dosage: 10 UG, SUBCUTANEOUS      10 UG, 2/D, SUBCUTANEOUS
     Route: 058
     Dates: start: 20070605

REACTIONS (7)
  - CARDIAC DISORDER [None]
  - DIARRHOEA [None]
  - EYE OPERATION [None]
  - HEADACHE [None]
  - NAUSEA [None]
  - VOMITING [None]
  - WEIGHT FLUCTUATION [None]
